FAERS Safety Report 6149239-8 (Version None)
Quarter: 2009Q2

REPORT INFORMATION
  Report Type: 
  Country: None (occurrence: None)
  Receive Date: 20090409
  Receipt Date: 20090401
  Transmission Date: 20091009
  Serious: Yes (Other)
  Sender: FDA-Public Use
  Company Number: PHEH2009US03259

PATIENT
  Sex: Male

DRUGS (3)
  1. FOCALIN XR [Suspect]
     Dosage: 15 MG, UNK
  2. CENTRUM [Concomitant]
  3. CALTRATE [Concomitant]

REACTIONS (3)
  - GILBERT'S SYNDROME [None]
  - HEPATIC ENZYME INCREASED [None]
  - OCULAR ICTERUS [None]
